FAERS Safety Report 4933553-5 (Version None)
Quarter: 2006Q1

REPORT INFORMATION
  Report Type: 
  Country: None (occurrence: None)
  Receive Date: 20060301
  Receipt Date: 20060221
  Transmission Date: 20060701
  Serious: Yes (Hospitalization)
  Sender: FDA-Public Use
  Company Number: 2006BI003045

PATIENT
  Age: 37 Year
  Sex: Male

DRUGS (2)
  1. AVONEX [Suspect]
     Indication: MULTIPLE SCLEROSIS
     Dosage: 30 UG;QW;IM
     Route: 030
     Dates: start: 20011005, end: 20020201
  2. AVONEX [Suspect]
     Indication: MULTIPLE SCLEROSIS
     Dosage: 30 UG;QW;IM
     Route: 030
     Dates: start: 20040421

REACTIONS (8)
  - ASTHENIA [None]
  - BLOOD FOLATE DECREASED [None]
  - DEHYDRATION [None]
  - EYE SWELLING [None]
  - INFLUENZA [None]
  - PERIORBITAL HAEMATOMA [None]
  - RENAL DISORDER [None]
  - ULCER HAEMORRHAGE [None]
